FAERS Safety Report 17494919 (Version 3)
Quarter: 2022Q1

REPORT INFORMATION
  Report Type: Spontaneous
  Country: US (occurrence: US)
  Receive Date: 20200303
  Receipt Date: 20220224
  Transmission Date: 20220423
  Serious: No
  Sender: FDA-Public Use
  Company Number: US-AMNEAL PHARMACEUTICALS-2019-AMRX-01958

PATIENT
  Age: 39 Year
  Sex: Female
  Weight: 72 kg

DRUGS (8)
  1. RYTARY [Suspect]
     Active Substance: CARBIDOPA\LEVODOPA
     Indication: Parkinson^s disease
     Dosage: 23.75/95MG, 3 CAPSULES, TID
     Route: 048
     Dates: start: 2019
  2. RYTARY [Suspect]
     Active Substance: CARBIDOPA\LEVODOPA
     Dosage: 23.75/95MG, 10 CAPSULES, QD (3 CAPSULES EVERY MORNING, 4 CAPSULES IN AFTERNOON AND 3 CAPSULES EVERY
     Route: 048
     Dates: start: 20191209
  3. RYTARY [Suspect]
     Active Substance: CARBIDOPA\LEVODOPA
     Dosage: 36.25/145MG, 3 CAPSULES, 3X/DAY
     Route: 048
     Dates: start: 20190501, end: 20201209
  4. RYTARY [Suspect]
     Active Substance: CARBIDOPA\LEVODOPA
     Dosage: 36.25/145MG, 2 CAPSULES, 4X/DAY
     Route: 048
     Dates: start: 20201209, end: 20210112
  5. RYTARY [Suspect]
     Active Substance: CARBIDOPA\LEVODOPA
     Dosage: 36.25/145MG, 2 CAPSULES, 5X/DAY
     Route: 048
     Dates: start: 20210112
  6. RYTARY [Suspect]
     Active Substance: CARBIDOPA\LEVODOPA
     Dosage: 23.75/95 MG, 1 CAPSULES, 4X/DAY
     Route: 048
     Dates: start: 2021
  7. MIRAPEX [Suspect]
     Active Substance: PRAMIPEXOLE DIHYDROCHLORIDE
     Indication: Dystonia
     Dosage: UNK, BEDTIME (AT NIGHT)
     Route: 065
  8. CARBIDOPA AND LEVODOPA [Concomitant]
     Active Substance: CARBIDOPA\LEVODOPA
     Indication: Parkinson^s disease
     Dosage: 2 TABLETS, BEDTIME (AT NIGHT)
     Route: 065

REACTIONS (3)
  - Therapeutic response shortened [Not Recovered/Not Resolved]
  - Emotional disorder [Recovering/Resolving]
  - Insomnia [Unknown]

NARRATIVE: CASE EVENT DATE: 20191101
